FAERS Safety Report 20891203 (Version 2)
Quarter: 2022Q2

REPORT INFORMATION
  Report Type: Spontaneous
  Country: DE (occurrence: DE)
  Receive Date: 20220530
  Receipt Date: 20220608
  Transmission Date: 20220720
  Serious: Yes (Other)
  Sender: FDA-Public Use
  Company Number: DE-PFIZER INC-202200747642

PATIENT
  Sex: Male

DRUGS (3)
  1. ZELDOX [Suspect]
     Active Substance: ZIPRASIDONE
     Dosage: 80 MG, DAILY
     Dates: start: 2015, end: 202109
  2. ZELDOX [Suspect]
     Active Substance: ZIPRASIDONE
     Dosage: 120 MG, DURING THE HOSPITAL STAY
  3. ZELDOX [Suspect]
     Active Substance: ZIPRASIDONE
     Dosage: 80 MG, 4X/DAY
     Dates: start: 202109

REACTIONS (2)
  - Overdose [Recovered/Resolved]
  - Hypersomnia [Recovered/Resolved]

NARRATIVE: CASE EVENT DATE: 20210901
